FAERS Safety Report 10382120 (Version 1)
Quarter: 2014Q3

REPORT INFORMATION
  Report Type: Spontaneous
  Country: DE (occurrence: DE)
  Receive Date: 20140813
  Receipt Date: 20140813
  Transmission Date: 20150326
  Serious: Yes (Other)
  Sender: FDA-Public Use
  Company Number: DE-PFIZER INC-2014221251

PATIENT
  Age: 86 Year
  Sex: Male

DRUGS (1)
  1. CARDULAR PP [Suspect]
     Active Substance: DOXAZOSIN MESYLATE
     Dosage: UNK

REACTIONS (4)
  - Liver function test abnormal [Unknown]
  - Haemorrhage intracranial [Unknown]
  - Brain natriuretic peptide increased [Unknown]
  - Confusional state [Unknown]

NARRATIVE: CASE EVENT DATE: 201407
